FAERS Safety Report 6772954-X (Version None)
Quarter: 2010Q2

REPORT INFORMATION
  Report Type: 
  Country: None (occurrence: None)
  Receive Date: 20100616
  Receipt Date: 20100608
  Transmission Date: 20101027
  Serious: Yes (Death)
  Sender: FDA-Public Use
  Company Number: US-PFIZER INC-2010072010

PATIENT
  Sex: Male
  Weight: 87.982 kg

DRUGS (6)
  1. LIPITOR [Suspect]
     Dosage: 80 MG, 1X/DAY
     Route: 048
  2. INSULIN DETEMIR [Concomitant]
     Indication: DIABETES MELLITUS
     Dosage: 5-10 UNITS 4X
     Route: 058
  3. NOVOLIN R [Concomitant]
     Indication: DIABETES MELLITUS
     Dosage: UNK
     Route: 058
  4. PLAVIX [Concomitant]
     Indication: CARDIOVASCULAR DISORDER
     Dosage: 75 MG, 1X/DAY
     Route: 048
  5. AVANDIA [Concomitant]
     Indication: DIABETES MELLITUS
     Dosage: 8 MG, 1X/DAY
     Route: 048
  6. COREG [Concomitant]
     Indication: HYPERTENSION
     Dosage: 6.25 MG, 2X/DAY
     Route: 048

REACTIONS (1)
  - DEATH [None]
